FAERS Safety Report 25322908 (Version 6)
Quarter: 2025Q4

REPORT INFORMATION
  Report Type: Report from Study
  Country: CA (occurrence: CA)
  Receive Date: 20250516
  Receipt Date: 20251003
  Transmission Date: 20260118
  Serious: Yes (Hospitalization)
  Sender: Alvotech
  Company Number: CA-JAMP PHARMA CORPORATION-2025-JAM-CA-00598

PATIENT
  Age: 80 Year
  Sex: Male

DRUGS (1)
  1. SIMLANDI [Suspect]
     Active Substance: ADALIMUMAB-RYVK
     Indication: Hidradenitis
     Dosage: 40 MILLIGRAM, WEEKLY
     Route: 058
     Dates: start: 20241218, end: 20250604

REACTIONS (14)
  - Hospitalisation [Unknown]
  - Electrolyte imbalance [Not Recovered/Not Resolved]
  - Influenza [Unknown]
  - Blood magnesium decreased [Not Recovered/Not Resolved]
  - Ear infection [Recovered/Resolved]
  - Dizziness [Not Recovered/Not Resolved]
  - Asthenia [Not Recovered/Not Resolved]
  - Hidradenitis [Not Recovered/Not Resolved]
  - Skin haemorrhage [Not Recovered/Not Resolved]
  - Skin discharge [Not Recovered/Not Resolved]
  - General physical health deterioration [Unknown]
  - Pyrexia [Not Recovered/Not Resolved]
  - Infection [Unknown]
  - Urinary tract infection [Unknown]

NARRATIVE: CASE EVENT DATE: 20250730
